FAERS Safety Report 6654383-2 (Version None)
Quarter: 2010Q1

REPORT INFORMATION
  Report Type: 
  Country: None (occurrence: None)
  Receive Date: 20100326
  Receipt Date: 20100316
  Transmission Date: 20100710
  Serious: Yes (Hospitalization)
  Sender: FDA-Public Use
  Company Number: JP-PFIZER INC-2009231901

PATIENT
  Age: 33 Year
  Sex: Female
  Weight: 53 kg

DRUGS (10)
  1. SUNITINIB MALATE [Suspect]
     Indication: BREAST CANCER RECURRENT
     Dosage: 37.5 MG, 1X/DAY
     Route: 048
     Dates: start: 20090527
  2. SUNITINIB MALATE [Suspect]
     Dosage: 25 MG, 1X/DAY
     Route: 048
     Dates: start: 20090629
  3. CAPECITABINE [Suspect]
     Indication: BREAST CANCER RECURRENT
     Dosage: 1450 MG, 2X/DAY
     Route: 048
     Dates: start: 20090527
  4. CAPECITABINE [Suspect]
     Dosage: 1110 MG, 2X/DAY
     Route: 048
     Dates: start: 20090617
  5. URSODEOXYCHOLIC ACID [Concomitant]
     Dosage: UNK
     Route: 048
     Dates: start: 20090513
  6. EPL CAP. [Concomitant]
     Dosage: UNK
     Route: 048
     Dates: start: 20090603
  7. MARZULENE S [Concomitant]
     Dosage: UNK
     Route: 048
     Dates: start: 20090527, end: 20090622
  8. PRIMPERAN INJ [Concomitant]
     Dosage: UNK
     Route: 048
     Dates: start: 20090527
  9. GARASONE [Concomitant]
     Dosage: UNK
     Route: 062
     Dates: end: 20090618
  10. DEPAS [Concomitant]
     Dosage: UNK
     Route: 048

REACTIONS (8)
  - ASCITES [None]
  - BREAST CANCER RECURRENT [None]
  - FACE OEDEMA [None]
  - LYMPHOCYTE COUNT DECREASED [None]
  - MALIGNANT NEOPLASM PROGRESSION [None]
  - NEUTROPHIL COUNT DECREASED [None]
  - PLATELET COUNT DECREASED [None]
  - WHITE BLOOD CELL COUNT DECREASED [None]
